FAERS Safety Report 16619502 (Version 1)
Quarter: 2019Q3

REPORT INFORMATION
  Report Type: Spontaneous
  Country: FR (occurrence: FR)
  Receive Date: 20190723
  Receipt Date: 20190723
  Transmission Date: 20191004
  Serious: Yes (Other)
  Sender: FDA-Public Use
  Company Number: FR-SA-2019SA191588

PATIENT
  Age: 58 Year
  Sex: Female

DRUGS (1)
  1. ARAVA [Suspect]
     Active Substance: LEFLUNOMIDE
     Indication: PSORIATIC ARTHROPATHY
     Dosage: 1 DF, QD
     Route: 065

REACTIONS (7)
  - Headache [Unknown]
  - Malaise [Unknown]
  - Diarrhoea [Unknown]
  - Impaired driving ability [Unknown]
  - Altered state of consciousness [Unknown]
  - Dizziness [Unknown]
  - Balance disorder [Unknown]
